FAERS Safety Report 7600488-9 (Version None)
Quarter: 2011Q3

REPORT INFORMATION
  Report Type: 
  Country: None (occurrence: None)
  Receive Date: 20110706
  Receipt Date: 20110706
  Transmission Date: 20111222
  Serious: Yes (Life-Threatening, Other)
  Sender: FDA-Public Use
  Company Number: None

PATIENT
  Age: 70 Year
  Sex: Female
  Weight: 77.1115 kg

DRUGS (2)
  1. EFFEXOR [Suspect]
     Indication: ANTIDEPRESSANT THERAPY
     Dosage: P.O.
     Route: 048
     Dates: start: 20110225, end: 20110325
  2. EFFEXOR [Suspect]
     Indication: THERMAL BURN
     Dosage: P.O.
     Route: 048
     Dates: start: 20110225, end: 20110325

REACTIONS (9)
  - PARANOIA [None]
  - HALLUCINATION [None]
  - DISSOCIATIVE DISORDER [None]
  - IMPULSIVE BEHAVIOUR [None]
  - DECREASED APPETITE [None]
  - ANXIETY [None]
  - DYSPNOEA [None]
  - NEGATIVE THOUGHTS [None]
  - SUICIDAL IDEATION [None]
